FAERS Safety Report 23111655 (Version 2)
Quarter: 2024Q3

REPORT INFORMATION
  Report Type: Report from Study
  Country: DE (occurrence: DE)
  Receive Date: 20231026
  Receipt Date: 20240708
  Transmission Date: 20241017
  Serious: Yes (Hospitalization)
  Sender: MYLAN
  Company Number: DE-JNJFOC-20231025882

PATIENT
  Age: 85 Year
  Sex: Female
  Weight: 61 kg

DRUGS (13)
  1. LENALIDOMIDE [Suspect]
     Active Substance: LENALIDOMIDE
     Indication: Plasma cell myeloma
     Dosage: UNK
     Route: 065
  2. DARATUMUMAB\HYALURONIDASE-FIHJ [Suspect]
     Active Substance: DARATUMUMAB\HYALURONIDASE-FIHJ
     Indication: Plasma cell myeloma
     Dosage: 1800 MILLIGRAM (15 ML)
     Route: 058
     Dates: start: 20230905
  3. DARATUMUMAB\HYALURONIDASE-FIHJ [Suspect]
     Active Substance: DARATUMUMAB\HYALURONIDASE-FIHJ
     Dosage: 1800 MILLIGRAM (15 ML)
     Route: 058
     Dates: start: 20230912
  4. DARATUMUMAB\HYALURONIDASE-FIHJ [Suspect]
     Active Substance: DARATUMUMAB\HYALURONIDASE-FIHJ
     Dosage: 1800 MILLIGRAM
     Route: 058
     Dates: start: 20230919
  5. DARATUMUMAB\HYALURONIDASE-FIHJ [Suspect]
     Active Substance: DARATUMUMAB\HYALURONIDASE-FIHJ
     Dosage: 1800 MILLIGRAM (15 ML)
     Route: 058
     Dates: start: 20231010
  6. POLYETHYLENE GLYCOLS [Concomitant]
     Active Substance: POLYETHYLENE GLYCOLS
     Indication: Constipation
     Dosage: 13.8 GRAM (PARENTERAL)
     Route: 065
     Dates: start: 20230709
  7. XARELTO [Concomitant]
     Active Substance: RIVAROXABAN
     Indication: Hypertension
     Dosage: 15 MILLIGRAM, QD (0-0-1)
     Route: 048
     Dates: start: 20230709
  8. CHOLECALCIFEROL [Concomitant]
     Active Substance: CHOLECALCIFEROL
     Indication: Prophylaxis
     Dosage: 2000
     Route: 048
     Dates: start: 20230717
  9. BISOPROLOL [Concomitant]
     Active Substance: BISOPROLOL\BISOPROLOL FUMARATE
     Indication: Hypertension
     Dosage: 2.5 MILLIGRAM, QD (1-0-0)
     Route: 048
     Dates: start: 20230709
  10. TRAMADOL [Concomitant]
     Active Substance: TRAMADOL\TRAMADOL HYDROCHLORIDE
     Indication: Pain
     Dosage: 100 MILLIGRAM, BID (1-0-1)
     Route: 048
     Dates: start: 20230709
  11. ACYCLOVIR [Concomitant]
     Active Substance: ACYCLOVIR
     Indication: Prophylaxis
     Dosage: 400 MILLIGRAM
     Route: 048
     Dates: start: 20230905
  12. TROSPIUM [Concomitant]
     Active Substance: TROSPIUM
     Indication: Prophylaxis
     Dosage: 30 MILLIGRAM, QD (DAILY)
     Route: 048
  13. ALENDRONIC ACID [Concomitant]
     Active Substance: ALENDRONIC ACID
     Indication: Prophylaxis
     Dosage: 70 MILLIGRAM, QW
     Route: 048
     Dates: start: 20230717

REACTIONS (1)
  - COVID-19 [Not Recovered/Not Resolved]

NARRATIVE: CASE EVENT DATE: 20230926
